FAERS Safety Report 8373195-5 (Version None)
Quarter: 2012Q2

REPORT INFORMATION
  Report Type: 
  Country: None (occurrence: None)
  Receive Date: 20120521
  Receipt Date: 20120518
  Transmission Date: 20120825
  Serious: Yes (Other)
  Sender: FDA-Public Use
  Company Number: US-PFIZER INC-2012108198

PATIENT
  Sex: Male
  Weight: 83.9 kg

DRUGS (5)
  1. LIPITOR [Suspect]
     Dosage: 20 MG, 1X/DAY
     Dates: end: 20111201
  2. LIPITOR [Suspect]
     Dosage: UNK
  3. ATORVASTATIN CALCIUM [Suspect]
     Dosage: UNK
  4. ASPIRIN [Concomitant]
     Dosage: UNK
  5. LIPITOR [Suspect]
     Indication: BLOOD CHOLESTEROL INCREASED
     Dosage: 10 MG, 1X/DAY
     Route: 048
     Dates: start: 20060101

REACTIONS (3)
  - MYALGIA [None]
  - HYPERTENSION [None]
  - DRUG EFFECT DECREASED [None]
